FAERS Safety Report 14778656 (Version 1)
Quarter: 2018Q2

REPORT INFORMATION
  Report Type: Spontaneous
  Country: TR (occurrence: TR)
  Receive Date: 20180419
  Receipt Date: 20180419
  Transmission Date: 20180711
  Serious: Yes (Hospitalization, Other)
  Sender: FDA-Public Use
  Company Number: TR-PFIZER INC-2018155014

PATIENT
  Age: 63 Year
  Sex: Male

DRUGS (3)
  1. SIROLIMUS. [Suspect]
     Active Substance: SIROLIMUS
     Indication: ACUTE MYOCARDIAL INFARCTION
     Dosage: UNK
  2. ACETYLSALICYLIC ACID [Concomitant]
     Active Substance: ASPIRIN
     Indication: ANTIPLATELET THERAPY
     Dosage: 100 MG, UNK
  3. CLOPIDOGREL SULFATE [Suspect]
     Active Substance: CLOPIDOGREL BISULFATE
     Indication: ANTIPLATELET THERAPY
     Dosage: 75 MG, UNK

REACTIONS (2)
  - Vascular stent thrombosis [Recovered/Resolved]
  - Acute myocardial infarction [Recovered/Resolved]
